FAERS Safety Report 9149395 (Version 3)
Quarter: 2013Q3

REPORT INFORMATION
  Report Type: Spontaneous
  Country: US (occurrence: US)
  Receive Date: 20130308
  Receipt Date: 20130725
  Transmission Date: 20140515
  Serious: No
  Sender: FDA-Public Use
  Company Number: US-PFIZER INC-2013078548

PATIENT
  Age: 41 Year
  Sex: Female

DRUGS (1)
  1. ALSUMA [Suspect]
     Indication: MIGRAINE
     Dosage: 60 MG /0.5 ML, AS NEEDED
     Dates: start: 20130225

REACTIONS (2)
  - Drug ineffective [Unknown]
  - Product quality issue [Unknown]
